APPROVED DRUG PRODUCT: TESTOSTERONE
Active Ingredient: TESTOSTERONE
Strength: 10MG/0.5GM ACTUATION
Dosage Form/Route: GEL, METERED;TRANSDERMAL
Application: A204571 | Product #001
Applicant: ACTAVIS LABORATORIES UT INC INDIRECT WHOLLY OWNED SUB OF TEVA PHARMACEUTICALS USA INC
Approved: Aug 5, 2015 | RLD: No | RS: Yes | Type: RX